FAERS Safety Report 22290627 (Version 4)
Quarter: 2024Q1

REPORT INFORMATION
  Report Type: Report from Study
  Country: US (occurrence: US)
  Receive Date: 20230505
  Receipt Date: 20240327
  Transmission Date: 20240410
  Serious: No
  Sender: FDA-Public Use
  Company Number: US-002147023-NVSC2023US101390

PATIENT
  Sex: Male

DRUGS (16)
  1. ILARIS [Suspect]
     Active Substance: CANAKINUMAB
     Indication: Pyrexia
     Dosage: UNK
     Route: 058
     Dates: start: 2013
  2. ILARIS [Suspect]
     Active Substance: CANAKINUMAB
     Indication: Abdominal discomfort
     Dosage: 150 MG, Q4W
     Route: 058
     Dates: start: 20191122
  3. ILARIS [Suspect]
     Active Substance: CANAKINUMAB
     Indication: Arthralgia
     Dosage: 150 MG, Q4W
     Route: 058
     Dates: start: 20191122
  4. COLCHICINE [Concomitant]
     Active Substance: COLCHICINE
     Indication: Abdominal discomfort
     Dosage: UNK
     Route: 065
     Dates: start: 2003, end: 2015
  5. BENTYL [Concomitant]
     Active Substance: DICYCLOMINE HYDROCHLORIDE
     Indication: Anxiety
     Dosage: UNK
     Route: 065
  6. DEXILANT [Concomitant]
     Active Substance: DEXLANSOPRAZOLE
     Indication: Anxiety
     Dosage: UNK
     Route: 065
  7. LEVSIN [Concomitant]
     Active Substance: HYOSCYAMINE SULFATE
     Indication: Anxiety
     Dosage: UNK
     Route: 065
  8. PANTOPRAZOLE [Concomitant]
     Active Substance: PANTOPRAZOLE
     Indication: Anxiety
     Dosage: UNK
     Route: 065
  9. ZOFRAN [Concomitant]
     Active Substance: ONDANSETRON HYDROCHLORIDE
     Indication: Anxiety
     Dosage: UNK
     Route: 065
  10. PEPCID [Concomitant]
     Active Substance: FAMOTIDINE
     Indication: Anxiety
     Dosage: UNK
     Route: 065
  11. PHENERGAN [Concomitant]
     Active Substance: PROMETHAZINE HYDROCHLORIDE
     Indication: Anxiety
     Dosage: UNK
     Route: 065
  12. PRAZOSIN [Concomitant]
     Active Substance: PRAZOSIN
     Indication: Anxiety
     Dosage: UNK
     Route: 065
  13. OXCARBAZEPINE [Concomitant]
     Active Substance: OXCARBAZEPINE
     Indication: Anxiety
     Dosage: UNK
     Route: 065
  14. REMERON [Concomitant]
     Active Substance: MIRTAZAPINE
     Indication: Anxiety
     Dosage: UNK
     Route: 065
  15. SUCRALFATE [Concomitant]
     Active Substance: SUCRALFATE
     Indication: Anxiety
     Dosage: UNK
     Route: 065
  16. VENLAFAXINE [Concomitant]
     Active Substance: VENLAFAXINE HYDROCHLORIDE
     Indication: Anxiety
     Dosage: UNK
     Route: 065

REACTIONS (11)
  - Cough [Unknown]
  - Dyspnoea [Unknown]
  - COVID-19 [Unknown]
  - Constipation [Unknown]
  - Pain in extremity [Unknown]
  - Flank pain [Unknown]
  - Condition aggravated [Unknown]
  - Vitamin D deficiency [Unknown]
  - Dyspnoea exertional [Unknown]
  - Inappropriate schedule of product administration [Unknown]
  - Back pain [Unknown]
